FAERS Safety Report 6457664-0 (Version None)
Quarter: 2009Q4

REPORT INFORMATION
  Report Type: 
  Country: None (occurrence: None)
  Receive Date: 20091024
  Receipt Date: 20091109
  Transmission Date: 20100525
  Serious: Yes (Death, Hospitalization)
  Sender: FDA-Public Use
  Company Number: 2009AC000197

PATIENT
  Age: 65 Year
  Sex: Male

DRUGS (19)
  1. DIGOXIN [Suspect]
     Dosage: 0.25 MG;PO
     Route: 048
  2. ACTOS [Concomitant]
  3. CELEXA [Concomitant]
  4. ASPIRIN [Concomitant]
  5. VIOXX [Concomitant]
  6. EPINEPHRINE [Concomitant]
  7. COUMADIN [Concomitant]
  8. HYZAAR [Concomitant]
  9. VYTORIN [Concomitant]
  10. METFORMIN HCL [Concomitant]
  11. BYETTA [Concomitant]
  12. VERAPAMIL [Concomitant]
  13. GLYBURIDE [Concomitant]
  14. NITROSTAT [Concomitant]
  15. TYLENOL (CAPLET) [Concomitant]
  16. AUGMENTIN [Concomitant]
  17. GLYBURIDE [Concomitant]
  18. CITALOPRAM HYDROBROMIDE [Concomitant]
  19. LOVASTATIN [Concomitant]

REACTIONS (22)
  - ANAEMIA [None]
  - ANOXIC ENCEPHALOPATHY [None]
  - ANXIETY [None]
  - ATRIAL FIBRILLATION [None]
  - CARDIO-RESPIRATORY ARREST [None]
  - CARDIOGENIC SHOCK [None]
  - CARDIOMYOPATHY [None]
  - CUTIS LAXA [None]
  - DEEP VEIN THROMBOSIS [None]
  - DEPRESSION [None]
  - DIABETES MELLITUS [None]
  - DIPLOPIA [None]
  - DRUG LEVEL BELOW THERAPEUTIC [None]
  - ECONOMIC PROBLEM [None]
  - FEAR [None]
  - GASTROINTESTINAL HAEMORRHAGE [None]
  - HYPOKALAEMIA [None]
  - INJURY [None]
  - RESPIRATORY FAILURE [None]
  - UNRESPONSIVE TO STIMULI [None]
  - VENTRICULAR FIBRILLATION [None]
  - VISION BLURRED [None]
